FAERS Safety Report 6479648-9 (Version None)
Quarter: 2009Q4

REPORT INFORMATION
  Report Type: 
  Country: None (occurrence: None)
  Receive Date: 20091207
  Receipt Date: 20091207
  Transmission Date: 20100525
  Serious: Yes (Hospitalization)
  Sender: FDA-Public Use
  Company Number: None

PATIENT
  Sex: Male
  Weight: 66 kg

DRUGS (2)
  1. CYTARABINE [Suspect]
     Dosage: 1190 MG
  2. DAUNORUBICIN [Suspect]
     Dosage: 228 MG

REACTIONS (1)
  - FEBRILE NEUTROPENIA [None]
